FAERS Safety Report 13587714 (Version 7)
Quarter: 2024Q4

REPORT INFORMATION
  Report Type: Spontaneous
  Country: US (occurrence: US)
  Receive Date: 20170526
  Receipt Date: 20241021
  Transmission Date: 20250115
  Serious: Yes (Hospitalization)
  Sender: BIOGEN
  Company Number: US-BIOGEN-2017BI00404761

PATIENT
  Age: 35 Year
  Sex: Female

DRUGS (7)
  1. TYSABRI [Suspect]
     Active Substance: NATALIZUMAB
     Indication: Multiple sclerosis
     Route: 050
     Dates: start: 20100219, end: 20100915
  2. TYSABRI [Suspect]
     Active Substance: NATALIZUMAB
     Dosage: INFUSE OVER 1 HOUR
     Route: 050
     Dates: start: 20110119, end: 20140211
  3. TYSABRI [Suspect]
     Active Substance: NATALIZUMAB
     Dosage: INFUSED OVER 1 HOUR
     Route: 050
     Dates: start: 20150605, end: 20170118
  4. ZINBRYTA [Suspect]
     Active Substance: DACLIZUMAB
     Indication: Multiple sclerosis
     Route: 050
     Dates: start: 20170401
  5. ZINBRYTA [Suspect]
     Active Substance: DACLIZUMAB
     Route: 050
     Dates: start: 20170331, end: 20170501
  6. ZINBRYTA [Suspect]
     Active Substance: DACLIZUMAB
     Route: 050
     Dates: start: 201703, end: 201703
  7. ZINBRYTA [Suspect]
     Active Substance: DACLIZUMAB
     Route: 050
     Dates: start: 20170213, end: 20170731

REACTIONS (2)
  - Progressive multifocal leukoencephalopathy [Not Recovered/Not Resolved]
  - Multiple sclerosis [Unknown]

NARRATIVE: CASE EVENT DATE: 20161001
